FAERS Safety Report 5146333-5 (Version None)
Quarter: 2006Q4

REPORT INFORMATION
  Report Type: 
  Country: None (occurrence: None)
  Receive Date: 20061102
  Receipt Date: 20061023
  Transmission Date: 20070319
  Serious: Yes (Other)
  Sender: FDA-Public Use
  Company Number: 2006129660

PATIENT
  Sex: Female
  Weight: 77.1115 kg

DRUGS (3)
  1. ZOLOFT [Suspect]
     Indication: DEPRESSION
  2. DESPIRAMINE [Concomitant]
  3. LORAZEPAM [Concomitant]

REACTIONS (5)
  - BLOOD CHOLESTEROL INCREASED [None]
  - CONDITION AGGRAVATED [None]
  - HERPES VIRUS INFECTION [None]
  - HYPERTENSION [None]
  - NEURALGIA [None]
